FAERS Safety Report 6212478-1 (Version None)
Quarter: 2009Q2

REPORT INFORMATION
  Report Type: 
  Country: None (occurrence: None)
  Receive Date: 20090603
  Receipt Date: 20090525
  Transmission Date: 20091009
  Serious: Yes (Other)
  Sender: FDA-Public Use
  Company Number: PT-JNJFOC-20090506721

PATIENT
  Sex: Female

DRUGS (6)
  1. REMICADE [Suspect]
     Route: 042
  2. REMICADE [Suspect]
     Indication: CROHN'S DISEASE
     Route: 042
  3. PANTOPRAZOLE SODIUM [Concomitant]
  4. CALCIUM [Concomitant]
  5. CYANOCOBALAMIN [Concomitant]
  6. RAMIPRIL [Concomitant]

REACTIONS (4)
  - ERYTHEMA [None]
  - FACE OEDEMA [None]
  - MUSCLE SPASMS [None]
  - VOMITING [None]
